FAERS Safety Report 6387082-5 (Version None)
Quarter: 2009Q4

REPORT INFORMATION
  Report Type: 
  Country: None (occurrence: None)
  Receive Date: 20091002
  Receipt Date: 20090923
  Transmission Date: 20100525
  Serious: Yes (Hospitalization)
  Sender: FDA-Public Use
  Company Number: US-AVENTIS-200918639US

PATIENT
  Sex: Female

DRUGS (4)
  1. LANTUS [Suspect]
     Route: 058
     Dates: start: 20070101
  2. APIDRA [Suspect]
     Dosage: DOSE: 2-4 UNITS SLIDING SCALE
     Route: 058
     Dates: start: 20070101
  3. OPTICLIK (INSULIN INJECTION PEN) [Suspect]
     Dates: start: 20070101
  4. OPTICLIK GREY [Suspect]

REACTIONS (2)
  - CARDIAC DISORDER [None]
  - EXPIRED DRUG ADMINISTERED [None]
